FAERS Safety Report 14295688 (Version 1)
Quarter: 2017Q4

REPORT INFORMATION
  Report Type: Spontaneous
  Country: FR (occurrence: FR)
  Receive Date: 20171218
  Receipt Date: 20171218
  Transmission Date: 20180321
  Serious: Yes (Hospitalization)
  Sender: FDA-Public Use
  Company Number: FR-MERCK KGAA-2037277

PATIENT
  Sex: Female

DRUGS (1)
  1. NOVOTHYROX [Suspect]
     Active Substance: LEVOTHYROXINE SODIUM
     Indication: AUTOIMMUNE THYROIDITIS
     Dates: start: 2017, end: 201708

REACTIONS (10)
  - Headache [None]
  - Hormone level abnormal [None]
  - Syncope [None]
  - Muscular weakness [None]
  - Hyperventilation [None]
  - Nausea [None]
  - Fatigue [None]
  - Vertigo [None]
  - Palpitations [None]
  - Malaise [None]

NARRATIVE: CASE EVENT DATE: 2017
